FAERS Safety Report 19620709 (Version 2)
Quarter: 2022Q3

REPORT INFORMATION
  Report Type: Spontaneous
  Country: US (occurrence: US)
  Receive Date: 20210728
  Receipt Date: 20220715
  Transmission Date: 20221026
  Serious: No
  Sender: FDA-Public Use
  Company Number: US-AMGEN-USASP2021112523

PATIENT
  Age: 90 Year
  Sex: Female

DRUGS (1)
  1. ARANESP [Suspect]
     Active Substance: DARBEPOETIN ALFA
     Indication: Anaemia
     Dosage: 40 MILLIGRAM, Q2WK
     Route: 065
     Dates: start: 202102

REACTIONS (1)
  - Needle issue [Unknown]

NARRATIVE: CASE EVENT DATE: 20210719
